FAERS Safety Report 23947110 (Version 7)
Quarter: 2024Q3

REPORT INFORMATION
  Report Type: Report from Study
  Country: JP (occurrence: JP)
  Receive Date: 20240606
  Receipt Date: 20240903
  Transmission Date: 20241017
  Serious: Yes (Other)
  Sender: ABBVIE
  Company Number: JP-ABBVIE-5767601

PATIENT
  Age: 50 Year
  Sex: Male

DRUGS (14)
  1. CARBIDOPA\LEVODOPA [Suspect]
     Active Substance: CARBIDOPA\LEVODOPA
     Indication: Parkinson^s disease
     Dosage: MD: 9.5 ML, CD: 2.9 ML/HR, ED: 1.5 ML/UNIT
     Route: 050
  2. CARBIDOPA\LEVODOPA [Suspect]
     Active Substance: CARBIDOPA\LEVODOPA
  3. FOSCARBIDOPA\FOSLEVODOPA [Suspect]
     Active Substance: FOSCARBIDOPA\FOSLEVODOPA
     Indication: Parkinson^s disease
     Dosage: CD: 0.27 ML/DAY, ED: 0.2 ML
     Route: 058
     Dates: start: 20240415
  4. FOSCARBIDOPA\FOSLEVODOPA [Suspect]
     Active Substance: FOSCARBIDOPA\FOSLEVODOPA
     Indication: Parkinson^s disease
     Dosage: CD: 0.29 ML/DAY
     Route: 058
  5. FOSCARBIDOPA\FOSLEVODOPA [Suspect]
     Active Substance: FOSCARBIDOPA\FOSLEVODOPA
     Indication: Parkinson^s disease
     Dosage: LARGER: 0.30 ML/H, STANDARD: 0.29 ML/H, SMALLER: 0.28 ML/H
     Route: 058
     Dates: start: 20240805
  6. ISTRADEFYLLINE [Concomitant]
     Active Substance: ISTRADEFYLLINE
     Indication: Parkinson^s disease
     Route: 048
  7. ZONISAMIDE [Concomitant]
     Active Substance: ZONISAMIDE
     Indication: Parkinson^s disease
     Route: 048
  8. PERGOLIDE MESILATE [Concomitant]
     Indication: Parkinson^s disease
     Dosage: MICROGRAM
     Route: 048
  9. PERGOLIDE MESILATE [Concomitant]
     Indication: Parkinson^s disease
     Dosage: MICROGRAM
     Route: 048
  10. OPICAPONE [Concomitant]
     Active Substance: OPICAPONE
     Indication: Parkinson^s disease
     Route: 048
  11. AMANTADINE HYDROCHLORIDE [Concomitant]
     Active Substance: AMANTADINE HYDROCHLORIDE
     Indication: Dyskinesia
     Route: 048
  12. Betamethasone valerate and gentamicin sulfate [Concomitant]
     Indication: Infusion site pain
     Route: 061
  13. CEFACLOR [Concomitant]
     Active Substance: CEFACLOR
     Indication: Infusion site pain
     Route: 048
  14. BENSERAZIDE HYDROCHLORIDE\LEVODOPA [Concomitant]
     Active Substance: BENSERAZIDE HYDROCHLORIDE\LEVODOPA
     Indication: Parkinson^s disease
     Dosage: TIME INTERVAL: 0.14285714 DAYS: 8 TABLET
     Route: 048

REACTIONS (17)
  - Lumbar spinal stenosis [Unknown]
  - Infusion site reaction [Unknown]
  - Infusion site induration [Not Recovered/Not Resolved]
  - Dyskinesia [Unknown]
  - Infusion site pain [Unknown]
  - On and off phenomenon [Unknown]
  - Infusion site irritation [Unknown]
  - Infusion site warmth [Unknown]
  - On and off phenomenon [Unknown]
  - Back pain [Unknown]
  - Infusion site reaction [Not Recovered/Not Resolved]
  - Infusion site discharge [Unknown]
  - Infusion site reaction [Unknown]
  - Sense of oppression [Unknown]
  - Infusion site reaction [Unknown]
  - Dyskinesia [Unknown]
  - On and off phenomenon [Unknown]

NARRATIVE: CASE EVENT DATE: 20240401
